FAERS Safety Report 7584276-8 (Version None)
Quarter: 2011Q2

REPORT INFORMATION
  Report Type: 
  Country: None (occurrence: None)
  Receive Date: 20110630
  Receipt Date: 20110622
  Transmission Date: 20111010
  Serious: Yes (Death)
  Sender: FDA-Public Use
  Company Number: JP-ELI_LILLY_AND_COMPANY-JP201106006565

PATIENT
  Sex: Male

DRUGS (1)
  1. ALIMTA [Suspect]
     Indication: PLEURAL MESOTHELIOMA MALIGNANT
     Dosage: 600 MG, OTHER
     Route: 042
     Dates: start: 20100817, end: 20100915

REACTIONS (2)
  - INTERSTITIAL LUNG DISEASE [None]
  - CONSTIPATION [None]
